FAERS Safety Report 21120497 (Version 3)
Quarter: 2022Q3

REPORT INFORMATION
  Report Type: Spontaneous
  Country: US (occurrence: US)
  Receive Date: 20220722
  Receipt Date: 20220901
  Transmission Date: 20221027
  Serious: No
  Sender: FDA-Public Use
  Company Number: US-BAXTER-2022BAX014623

PATIENT

DRUGS (1)
  1. DEXTROSE\MAGNESIUM SULFATE [Suspect]
     Active Substance: DEXTROSE\MAGNESIUM SULFATE
     Route: 065

REACTIONS (1)
  - No adverse event [Unknown]
